FAERS Safety Report 4866704-1 (Version None)
Quarter: 2005Q4

REPORT INFORMATION
  Report Type: 
  Country: None (occurrence: None)
  Receive Date: 20051221
  Receipt Date: 20051205
  Transmission Date: 20060501
  Serious: Yes (Other)
  Sender: FDA-Public Use
  Company Number: L05-ESP-05667-01

PATIENT
  Age: 72 Year
  Sex: Male

DRUGS (9)
  1. THEOPHYLLINE [Suspect]
     Indication: CHRONIC OBSTRUCTIVE PULMONARY DISEASE
     Dosage: 500 MG QD PO
     Route: 048
  2. THEOPHYLLINE [Suspect]
     Indication: CHRONIC OBSTRUCTIVE PULMONARY DISEASE
     Dosage: 200 MG QD PO
     Route: 048
  3. THEOPHYLLINE [Suspect]
     Indication: CHRONIC OBSTRUCTIVE PULMONARY DISEASE
     Dosage: 600 MG QD PO
     Route: 048
  4. ALLOPURINOL [Suspect]
     Indication: HYPERURICAEMIA
  5. RANITIDINE [Concomitant]
  6. FLUTICASONE PROPIONATE [Concomitant]
  7. IPRATROPIUM BROMIDE [Concomitant]
  8. FORMOTEROL [Concomitant]
  9. SIMVASTATIN [Concomitant]

REACTIONS (4)
  - BREAST PAIN [None]
  - DRUG INTERACTION [None]
  - GASTRIC DISORDER [None]
  - GYNAECOMASTIA [None]
